FAERS Safety Report 8076442-2 (Version None)
Quarter: 2012Q1

REPORT INFORMATION
  Report Type: 
  Country: None (occurrence: None)
  Receive Date: 20120127
  Receipt Date: 20120124
  Transmission Date: 20120608
  Serious: Yes (Death)
  Sender: FDA-Public Use
  Company Number: UG-ABBOTT-12P-165-0897329-00

PATIENT
  Age: 40 Year
  Sex: Male

DRUGS (5)
  1. COTROMOXAZOLE [Concomitant]
     Indication: PRODUCT USED FOR UNKNOWN INDICATION
     Dates: start: 20090504, end: 20111114
  2. ACETAMINOPHEN [Concomitant]
     Indication: PRODUCT USED FOR UNKNOWN INDICATION
  3. LOPINAVIR/RITONAVIR [Suspect]
     Indication: HIV INFECTION
     Route: 048
     Dates: start: 20110429, end: 20111114
  4. SEPTRA [Concomitant]
     Indication: PRODUCT USED FOR UNKNOWN INDICATION
  5. QUININE SULFATE [Concomitant]
     Indication: PRODUCT USED FOR UNKNOWN INDICATION

REACTIONS (2)
  - VOMITING [None]
  - MALARIA [None]
